FAERS Safety Report 10176800 (Version 3)
Quarter: 2014Q2

REPORT INFORMATION
  Report Type: Spontaneous
  Country: IT (occurrence: IT)
  Receive Date: 20140516
  Receipt Date: 20140605
  Transmission Date: 20141212
  Serious: Yes (Death, Hospitalization)
  Sender: FDA-Public Use
  Company Number: IT-BAYER-2014-036929

PATIENT
  Age: 72 Year
  Sex: Male
  Weight: 60 kg

DRUGS (1)
  1. NEXAVAR [Suspect]
     Indication: HEPATOCELLULAR CARCINOMA
     Dosage: 800 MG, QD
     Route: 048
     Dates: start: 20131004, end: 20131012

REACTIONS (4)
  - Jaundice hepatocellular [Fatal]
  - Nausea [Fatal]
  - Abdominal pain [Fatal]
  - Vomiting [Fatal]
